FAERS Safety Report 5758130-8 (Version None)
Quarter: 2008Q2

REPORT INFORMATION
  Report Type: 
  Country: None (occurrence: None)
  Receive Date: 20080507
  Receipt Date: 20071214
  Transmission Date: 20081010
  Serious: Yes (Hospitalization)
  Sender: FDA-Public Use
  Company Number: 231262J07USA

PATIENT
  Age: 22 Year
  Sex: Female

DRUGS (1)
  1. REBIF [Suspect]
     Indication: MULTIPLE SCLEROSIS
     Dosage: 44 MCG, 3 IN 1 WEEKS, SUBCUTANEOUS
     Route: 058
     Dates: start: 20070702

REACTIONS (7)
  - CONDITION AGGRAVATED [None]
  - DYSURIA [None]
  - GAIT DISTURBANCE [None]
  - HEADACHE [None]
  - INJECTION SITE ERYTHEMA [None]
  - MULTIPLE SCLEROSIS RELAPSE [None]
  - VISION BLURRED [None]
